FAERS Safety Report 24765422 (Version 1)
Quarter: 2024Q4

REPORT INFORMATION
  Report Type: Spontaneous
  Country: SE (occurrence: SE)
  Receive Date: 20241223
  Receipt Date: 20241223
  Transmission Date: 20250114
  Serious: Yes (Death)
  Sender: ACCORD
  Company Number: None

PATIENT
  Age: 80 Year
  Sex: Female
  Weight: 79 kg

DRUGS (17)
  1. ANASTROZOLE [Suspect]
     Active Substance: ANASTROZOLE
     Indication: Breast cancer
     Dosage: STRENGTH: 1 MG, 1 TABLET 1 TIME PER DAY
     Dates: start: 20241018, end: 20241022
  2. ACETAMINOPHEN [Concomitant]
     Active Substance: ACETAMINOPHEN
     Dosage: 1 TABLET 3 TIMES DAILY
     Dates: start: 20220720
  3. ELIQUIS [Concomitant]
     Active Substance: APIXABAN
     Dosage: 1 TABLET 2 TIMES DAILY
     Dates: start: 20210709
  4. BISOPROLOL [Concomitant]
     Active Substance: BISOPROLOL
     Dosage: STRENGTH: 2.5, 2.12 MG, 2 TABLETS 2 TIMES DAILY
     Dates: start: 20210709, end: 20241022
  5. SODIUM BICARBONATE [Concomitant]
     Active Substance: SODIUM BICARBONATE
     Dosage: ONE TABLET IN THE MORNING
     Dates: start: 20211029, end: 20241022
  6. ACLIDINIUM BROMIDE [Concomitant]
     Active Substance: ACLIDINIUM BROMIDE
     Dosage: STRENGTH: 322, 375 MCG, 1 DOSE IN THE MORNING
     Dates: start: 20240304
  7. FOLIC ACID [Concomitant]
     Active Substance: FOLIC ACID
     Dosage: STRENGTH: 1MG, 1 TABLET 1 TIME DAILY
     Dates: start: 20220720
  8. SYMBICORT [Concomitant]
     Active Substance: BUDESONIDE\FORMOTEROL FUMARATE DIHYDRATE
     Dosage: STRENGTH: 320, 9, 7.37 MCG, 1 INHALATION 2 TIMES DAILY
     Dates: start: 20240304
  9. OMEPRAZOLE [Concomitant]
     Active Substance: OMEPRAZOLE
     Dosage: STRENGTH: 40 MG, 1 TABLET 2 TIMES/DAY
     Dates: start: 20190404, end: 20241022
  10. LEVOTHYROXINE SODIUM [Concomitant]
     Active Substance: LEVOTHYROXINE SODIUM
     Dosage: STRENGTH:100, 102.9 MCG, ONE TABLET DAILY
     Dates: start: 20220427
  11. AMLODIPINE [Concomitant]
     Active Substance: AMLODIPINE BESYLATE
     Dosage: STRENGTH: 6.95, 5 MG, ONE TABLET 1 TIME DAILY
     Dates: start: 20230210, end: 20241022
  12. QUETIAPINE [Concomitant]
     Active Substance: QUETIAPINE
     Dosage: STRENGTH: 28.783, 25 MG, 1 TABLET AT NIGHT
     Dates: start: 20211103, end: 20241022
  13. ERYTHROPOIETIN [Concomitant]
     Active Substance: ERYTHROPOIETIN
     Dosage: STRENGTH: 10000 IU, SOLUTION FOR INJECTION IN PRE-FILLED SYRINGE
     Dates: start: 20240305
  14. SERTRALINE [Concomitant]
     Active Substance: SERTRALINE HYDROCHLORIDE
     Dosage: STRENGTH: 56, 50 MG, 2 TABLETS IN THE MORNING
     Dates: start: 20210709, end: 20241022
  15. FURIX [Concomitant]
     Dosage: STRENGTH: 500 MG, ONE TABLET 1 TIME DAILY
     Dates: start: 20230819, end: 20241022
  16. DOXAZOSIN [Concomitant]
     Active Substance: DOXAZOSIN\DOXAZOSIN MESYLATE
     Dosage: STRENGTH: 4, 4.85 MG, 1 TABLET 2 TIMES DAILY
     Dates: start: 20240613, end: 20241022
  17. OMEPRAZOLE [Concomitant]
     Active Substance: OMEPRAZOLE
     Dosage: STRENGTH: 20 MG, 1 TABLET 2 TIMES/DAY
     Dates: start: 20241023

REACTIONS (2)
  - Renal impairment [Fatal]
  - Azotaemia [Fatal]

NARRATIVE: CASE EVENT DATE: 20241001
